FAERS Safety Report 17121159 (Version 1)
Quarter: 2019Q4

REPORT INFORMATION
  Report Type: Spontaneous
  Country: US (occurrence: US)
  Receive Date: 20191205
  Receipt Date: 20191205
  Transmission Date: 20200122
  Serious: Yes (Other)
  Sender: FDA-Public Use
  Company Number: None

PATIENT
  Age: 76 Year
  Sex: Male

DRUGS (10)
  1. LORAZEPAM 0.25 MG Q4H PRN [Concomitant]
     Dates: start: 20191002
  2. PROMETHAZINE 12.5 MG 1 TAB Q6H PRN [Concomitant]
     Dates: start: 20191115
  3. MUCINEX ER 600 MG BID PRN [Concomitant]
     Dates: start: 20190508
  4. HYDROCODONE-ACETMAINOPHEN 7.5-325 Q6H PRN [Concomitant]
     Dates: start: 20190329
  5. PROBIOTIC QD [Concomitant]
     Dates: start: 20191009
  6. CHLORPROMAZINE. [Suspect]
     Active Substance: CHLORPROMAZINE
     Indication: HICCUPS
     Route: 048
     Dates: start: 20191111, end: 20191111
  7. DUONEB Q6H PRN [Concomitant]
     Dates: start: 20190329
  8. MAGNEISUM 500 MG QD [Concomitant]
     Dates: start: 20190925
  9. NICODERM CQ 21 MG/24 HR [Concomitant]
     Dates: start: 20190814
  10. PREDNISONE 10 QD [Concomitant]
     Dates: start: 20190327

REACTIONS (3)
  - Dysarthria [None]
  - Tremor [None]
  - Urinary incontinence [None]

NARRATIVE: CASE EVENT DATE: 20191111
